FAERS Safety Report 6198688-0 (Version None)
Quarter: 2009Q2

REPORT INFORMATION
  Report Type: 
  Country: None (occurrence: None)
  Receive Date: 20090519
  Receipt Date: 20090519
  Transmission Date: 20091009
  Serious: Yes (Other)
  Sender: FDA-Public Use
  Company Number: None

PATIENT
  Age: 50 Year
  Sex: Female
  Weight: 78.0187 kg

DRUGS (1)
  1. BONIVA [Suspect]
     Indication: OSTEOPOROSIS
     Dosage: 1 MONTHLY
     Dates: start: 20090306, end: 20090506

REACTIONS (8)
  - ABASIA [None]
  - BONE PAIN [None]
  - IMPAIRED WORK ABILITY [None]
  - MYALGIA [None]
  - PAIN [None]
  - PAIN OF SKIN [None]
  - PAINFUL RESPIRATION [None]
  - RASH [None]
